FAERS Safety Report 15317358 (Version 1)
Quarter: 2018Q3

REPORT INFORMATION
  Report Type: Report from Study
  Country: US (occurrence: US)
  Receive Date: 20180824
  Receipt Date: 20180824
  Transmission Date: 20181010
  Serious: Yes (Death)
  Sender: FDA-Public Use
  Company Number: US-EXELIXIS-CABO-18015502

PATIENT
  Age: 68 Year
  Sex: Female
  Weight: 51.47 kg

DRUGS (12)
  1. MULTIVITAMINS, COMBINATIONS [Concomitant]
     Active Substance: VITAMINS
  2. HYDROCODONE [Concomitant]
     Active Substance: HYDROCODONE
  3. TEMAZEPAM. [Concomitant]
     Active Substance: TEMAZEPAM
  4. CABOMETYX [Suspect]
     Active Substance: CABOZANTINIB S-MALATE
     Indication: METASTASES TO KIDNEY
     Dosage: 60 MG, QD
     Route: 048
     Dates: start: 20180718
  5. OMEPRAZOLE. [Concomitant]
     Active Substance: OMEPRAZOLE
  6. MORPHINE [Concomitant]
     Active Substance: MORPHINE
  7. BENZONATATE. [Concomitant]
     Active Substance: BENZONATATE
  8. PREDNISONE. [Concomitant]
     Active Substance: PREDNISONE
  9. ATORVASTATIN [Concomitant]
     Active Substance: ATORVASTATIN
  10. CALCIUM [Concomitant]
     Active Substance: CALCIUM
  11. VALSARTAN. [Concomitant]
     Active Substance: VALSARTAN
  12. METOPROLOL. [Concomitant]
     Active Substance: METOPROLOL

REACTIONS (2)
  - Death [Fatal]
  - Off label use [Unknown]

NARRATIVE: CASE EVENT DATE: 20180814
